FAERS Safety Report 9297527 (Version 1)
Quarter: 2013Q2

REPORT INFORMATION
  Report Type: Spontaneous
  Country: US (occurrence: US)
  Receive Date: 20130520
  Receipt Date: 20130520
  Transmission Date: 20140414
  Serious: Yes (Hospitalization)
  Sender: FDA-Public Use
  Company Number: US-BAYER-2013-060231

PATIENT
  Age: 44 Year
  Sex: Female
  Weight: 144.4 kg

DRUGS (10)
  1. YAZ [Suspect]
     Indication: CONTRACEPTION
  2. YASMIN [Suspect]
  3. OCELLA [Suspect]
  4. ALBUTEROL [Concomitant]
     Dosage: 90 MCG, PRN
     Route: 045
  5. AMBIEN [Concomitant]
     Dosage: 5 MG, PRN
  6. PRILOSEC [Concomitant]
     Dosage: 20 MG, QD
  7. ASMANEX [Concomitant]
     Dosage: 220 MCG/24HR, QD
     Route: 045
  8. PREDNISONE [Concomitant]
  9. ADVIL [Concomitant]
     Indication: CHEST PAIN
  10. OMEPRAZOLE [Concomitant]

REACTIONS (2)
  - Pulmonary embolism [None]
  - Deep vein thrombosis [None]
